FAERS Safety Report 6054675-4 (Version None)
Quarter: 2009Q1

REPORT INFORMATION
  Report Type: 
  Country: None (occurrence: None)
  Receive Date: 20090128
  Receipt Date: 20090119
  Transmission Date: 20090719
  Serious: Yes (Disabling)
  Sender: FDA-Public Use
  Company Number: GB-RANBAXY-2009RR-20955

PATIENT
  Sex: Male
  Weight: 70 kg

DRUGS (1)
  1. ACETAMINOPHEN [Suspect]

REACTIONS (2)
  - CONDITION AGGRAVATED [None]
  - HEADACHE [None]
